FAERS Safety Report 8846882 (Version 1)
Quarter: 2012Q4

REPORT INFORMATION
  Report Type: Spontaneous
  Country: US (occurrence: None)
  Receive Date: 20121016
  Receipt Date: 20121016
  Transmission Date: 20130627
  Serious: Yes (Death, Other)
  Sender: FDA-Public Use
  Company Number: FK201203036

PATIENT
  Age: 78 Year
  Sex: Male

DRUGS (2)
  1. GEMCITABINE (MANUFACTURER UNKNOWN) (GEMCITABINE) (GEMCITABINE) [Suspect]
     Indication: NON-SMALL CELL LUNG CANCER
     Dosage: 1000 mg, 17 doses
  2. VINCRISTINE (VINCRISTINE) [Concomitant]

REACTIONS (5)
  - Haemolytic uraemic syndrome [None]
  - Hydronephrosis [None]
  - Haemodialysis [None]
  - Fluid overload [None]
  - Renal artery thrombosis [None]
